FAERS Safety Report 17811088 (Version 1)
Quarter: 2020Q2

REPORT INFORMATION
  Report Type: Spontaneous
  Country: US (occurrence: US)
  Receive Date: 20200520
  Receipt Date: 20200520
  Transmission Date: 20200714
  Serious: Yes (Other)
  Sender: FDA-Public Use
  Company Number: None

PATIENT
  Age: 27 Year
  Sex: Female
  Weight: 141.8 kg

DRUGS (4)
  1. REMDESIVIR VIA EMERGENCY USE AUTHORIZATION [Suspect]
     Active Substance: REMDESIVIR
     Indication: COVID-19
     Route: 041
     Dates: start: 20200515, end: 20200517
  2. COVID-19 CONVALESCENT PLASMA [Concomitant]
     Dates: start: 20200519, end: 20200519
  3. TOCILIZUMAB 400 MG IV IN 100 ML NACL [Concomitant]
     Dates: start: 20200518, end: 20200518
  4. TOCILIZUMAB 400 MG IV IN 100 ML NACL [Concomitant]
     Dates: start: 20200517, end: 20200517

REACTIONS (7)
  - Aspartate aminotransferase increased [None]
  - Blood alkaline phosphatase increased [None]
  - Haemofiltration [None]
  - Liver function test increased [None]
  - Alanine aminotransferase increased [None]
  - Right ventricular dysfunction [None]
  - Renal impairment [None]

NARRATIVE: CASE EVENT DATE: 20200519
